FAERS Safety Report 7398291-0 (Version None)
Quarter: 2011Q2

REPORT INFORMATION
  Report Type: 
  Country: None (occurrence: None)
  Receive Date: 20110406
  Receipt Date: 20110322
  Transmission Date: 20111010
  Serious: Yes (Other)
  Sender: FDA-Public Use
  Company Number: JP-BAYER-2011-025740

PATIENT
  Age: 80 Year
  Sex: Male
  Weight: 47 kg

DRUGS (6)
  1. AMLODIPINE BESYLATE [Concomitant]
     Indication: HYPERTENSION
  2. MAGNEVIST [Suspect]
     Dosage: DAILY DOSE 10 ML
  3. MAGNEVIST [Suspect]
     Dosage: DAILY DOSE 10 ML
  4. MAGNEVIST [Suspect]
     Indication: NUCLEAR MAGNETIC RESONANCE IMAGING
     Dosage: DAILY DOSE 10 ML
  5. VALSARTAN [Concomitant]
     Indication: HYPERTENSION
  6. CARVEDILOL [Concomitant]
     Indication: HYPERTENSION

REACTIONS (10)
  - DYSPNOEA [None]
  - PULMONARY OEDEMA [None]
  - VOMITING [None]
  - HYPERTENSION [None]
  - PULMONARY CONGESTION [None]
  - OLIGURIA [None]
  - OEDEMA PERIPHERAL [None]
  - ALTERED STATE OF CONSCIOUSNESS [None]
  - RENAL IMPAIRMENT [None]
  - AZOTAEMIA [None]
